FAERS Safety Report 25275729 (Version 2)
Quarter: 2025Q2

REPORT INFORMATION
  Report Type: Report from Study
  Country: US (occurrence: US)
  Receive Date: 20250507
  Receipt Date: 20250610
  Transmission Date: 20250716
  Serious: Yes (Hospitalization, Other)
  Sender: ABBVIE
  Company Number: US-ABBVIE-6262883

PATIENT
  Age: 66 Year
  Sex: Female

DRUGS (2)
  1. RINVOQ [Suspect]
     Active Substance: UPADACITINIB
     Indication: Rheumatoid arthritis
     Route: 048
     Dates: start: 20220315
  2. RINVOQ [Suspect]
     Active Substance: UPADACITINIB
     Indication: Rheumatoid arthritis
     Route: 048
     Dates: start: 2021

REACTIONS (11)
  - Spinal operation [Unknown]
  - Post procedural complication [Unknown]
  - Spondylitis [Unknown]
  - Muscle tightness [Unknown]
  - Hypoaesthesia [Unknown]
  - Trigger finger [Unknown]
  - Musculoskeletal disorder [Unknown]
  - Spinal cord haematoma [Unknown]
  - Pain [Unknown]
  - Musculoskeletal disorder [Not Recovered/Not Resolved]
  - Pain in extremity [Not Recovered/Not Resolved]

NARRATIVE: CASE EVENT DATE: 20240101
